FAERS Safety Report 20194644 (Version 2)
Quarter: 2022Q1

REPORT INFORMATION
  Report Type: Report from Study
  Country: CA (occurrence: CA)
  Receive Date: 20211216
  Receipt Date: 20220115
  Transmission Date: 20220424
  Serious: Yes (Death, Hospitalization)
  Sender: FDA-Public Use
  Company Number: CA-ABBVIE-21K-028-4200947-00

PATIENT
  Age: 54 Year
  Sex: Female

DRUGS (1)
  1. HUMIRA [Suspect]
     Active Substance: ADALIMUMAB
     Indication: Rheumatoid arthritis
     Route: 058
     Dates: start: 20080215

REACTIONS (9)
  - Acute respiratory distress syndrome [Fatal]
  - Cardio-respiratory arrest [Fatal]
  - Blood lactic acid increased [Fatal]
  - Shock [Fatal]
  - Influenza A virus test positive [Fatal]
  - Immunosuppression [Fatal]
  - Respiratory failure [Fatal]
  - Respiratory tract infection [Fatal]
  - Pneumonia [Fatal]

NARRATIVE: CASE EVENT DATE: 20200101
